FAERS Safety Report 13224865 (Version 1)
Quarter: 2017Q1

REPORT INFORMATION
  Report Type: Spontaneous
  Country: US (occurrence: US)
  Receive Date: 20170213
  Receipt Date: 20170213
  Transmission Date: 20170428
  Serious: No
  Sender: FDA-Public Use
  Company Number: US-TEVA-707459USA

PATIENT
  Sex: Female

DRUGS (1)
  1. CLONIDINE. [Suspect]
     Active Substance: CLONIDINE
     Route: 062

REACTIONS (4)
  - Blood pressure fluctuation [Unknown]
  - Drug ineffective [Unknown]
  - Dizziness [Unknown]
  - Feeling abnormal [Unknown]
